FAERS Safety Report 10977176 (Version 1)
Quarter: 2015Q2

REPORT INFORMATION
  Report Type: Report from Study
  Country: DE (occurrence: DE)
  Receive Date: 20150402
  Receipt Date: 20150402
  Transmission Date: 20150821
  Serious: Yes (Hospitalization)
  Sender: FDA-Public Use
  Company Number: DE-ROCHE-1557860

PATIENT
  Sex: Female

DRUGS (1)
  1. ZELBORAF [Suspect]
     Active Substance: VEMURAFENIB
     Indication: METASTATIC MALIGNANT MELANOMA
     Route: 065

REACTIONS (12)
  - Hypersensitivity [Unknown]
  - Blister [Unknown]
  - Alopecia [Unknown]
  - Arthralgia [Unknown]
  - Erythema [Unknown]
  - Dyspnoea [Unknown]
  - Hearing impaired [Unknown]
  - Fatigue [Unknown]
  - Swelling face [Unknown]
  - Visual acuity reduced [Unknown]
  - Peripheral swelling [Unknown]
  - Lethargy [Unknown]
